FAERS Safety Report 9416438 (Version 1)
Quarter: 2013Q3

REPORT INFORMATION
  Report Type: Spontaneous
  Country: US (occurrence: None)
  Receive Date: 20130723
  Receipt Date: 20130723
  Transmission Date: 20140515
  Serious: Yes (Other)
  Sender: FDA-Public Use
  Company Number: None

PATIENT
  Age: 66 Year
  Sex: Male

DRUGS (1)
  1. SOLIFENACIN [Suspect]
     Indication: URGE INCONTINENCE

REACTIONS (2)
  - Renal failure acute [None]
  - Hydronephrosis [None]
